FAERS Safety Report 9735481 (Version 2)
Quarter: 2013Q4

REPORT INFORMATION
  Report Type: Spontaneous
  Country: US (occurrence: US)
  Receive Date: 20131206
  Receipt Date: 20131206
  Transmission Date: 20140711
  Serious: No
  Sender: FDA-Public Use
  Company Number: US-GILEAD-2009-0023265

PATIENT
  Sex: Female

DRUGS (16)
  1. LETAIRIS [Suspect]
     Indication: PULMONARY ARTERIAL HYPERTENSION
     Route: 048
     Dates: start: 20090701
  2. COUMADIN [Concomitant]
  3. FUROSEMIDE [Concomitant]
  4. METOPROLOL [Concomitant]
  5. NITROGLYCERIN [Concomitant]
  6. AVAPRO [Concomitant]
  7. POTASSIUM CHLORIDE [Concomitant]
  8. MIRAPEX [Concomitant]
  9. NASONEX [Concomitant]
  10. DRAMAMINE [Concomitant]
  11. PREMARIN [Concomitant]
  12. CITRUCEL PACKET [Concomitant]
  13. LOPID [Concomitant]
  14. LEVOTHYROXINE [Concomitant]
  15. NEXIUM [Concomitant]
  16. CENTRUM SILVER [Concomitant]

REACTIONS (2)
  - Rash [Unknown]
  - Oedema [Unknown]
